FAERS Safety Report 6661196-4 (Version None)
Quarter: 2010Q1

REPORT INFORMATION
  Report Type: 
  Country: None (occurrence: None)
  Receive Date: 20100331
  Receipt Date: 20100325
  Transmission Date: 20100710
  Serious: Yes (Hospitalization)
  Sender: FDA-Public Use
  Company Number: B0644307A

PATIENT
  Sex: Female

DRUGS (2)
  1. TYVERB [Suspect]
     Indication: BREAST CANCER
     Route: 048
     Dates: start: 20090710, end: 20091105
  2. CAPECITABINE [Concomitant]
     Dosage: 3000MG PER DAY
     Route: 048
     Dates: start: 20090710, end: 20091105

REACTIONS (2)
  - JAUNDICE [None]
  - TRANSAMINASES INCREASED [None]
